FAERS Safety Report 5324983-0 (Version None)
Quarter: 2007Q2

REPORT INFORMATION
  Report Type: 
  Country: None (occurrence: None)
  Receive Date: 20070515
  Receipt Date: 20070430
  Transmission Date: 20071010
  Serious: Yes (Death)
  Sender: FDA-Public Use
  Company Number: AT-PURDUE-DEU_2007_0003291

PATIENT
  Age: 19 Year
  Sex: Male

DRUGS (2)
  1. SUBSTITOL RETARD KAPSELN [Suspect]
     Indication: DRUG DEPENDENCE
     Route: 048
  2. ADDICTIVE DRUGS [Suspect]
     Indication: DRUG DEPENDENCE
     Route: 048

REACTIONS (3)
  - BRAIN OEDEMA [None]
  - MULTIPLE DRUG OVERDOSE [None]
  - PULMONARY OEDEMA [None]
